FAERS Safety Report 5588794-3 (Version None)
Quarter: 2008Q1

REPORT INFORMATION
  Report Type: 
  Country: None (occurrence: None)
  Receive Date: 20080111
  Receipt Date: 20080111
  Transmission Date: 20080703
  Serious: Yes (Hospitalization)
  Sender: FDA-Public Use
  Company Number: B0502392A

PATIENT
  Age: 27 Year
  Sex: Male

DRUGS (9)
  1. RANITIDINE [Suspect]
     Dosage: 300MG PER DAY
     Route: 048
  2. RANITIDINE [Suspect]
     Dosage: 1050MG PER DAY
     Route: 048
     Dates: start: 20070604, end: 20070604
  3. CLOZARIL [Suspect]
     Indication: SCHIZOPHRENIA
     Dosage: 450MG PER DAY
     Route: 048
     Dates: start: 20011003
  4. HYOSCINE [Suspect]
     Dosage: 600MCG PER DAY
     Route: 048
  5. VALPROATE SODIUM [Suspect]
     Indication: AFFECTIVE DISORDER
     Dosage: 1600MG PER DAY
     Route: 048
  6. COCAINE [Suspect]
  7. CLOZARIL [Suspect]
     Dosage: 6100MG PER DAY
     Route: 048
     Dates: start: 20070604, end: 20070604
  8. HYOSCINE [Suspect]
     Dosage: 210MG PER DAY
     Route: 048
     Dates: start: 20070604, end: 20070604
  9. VALPROATE SODIUM [Suspect]
     Dosage: 9600MG PER DAY
     Route: 048
     Dates: start: 20070604, end: 20070604

REACTIONS (9)
  - BLOOD CREATINE PHOSPHOKINASE INCREASED [None]
  - C-REACTIVE PROTEIN INCREASED [None]
  - HYPOXIA [None]
  - LOWER RESPIRATORY TRACT INFECTION [None]
  - OVERDOSE [None]
  - PYREXIA [None]
  - RENAL FAILURE ACUTE [None]
  - TACHYCARDIA [None]
  - THROMBOCYTOPENIA [None]
